FAERS Safety Report 5557034-3 (Version None)
Quarter: 2007Q4

REPORT INFORMATION
  Report Type: 
  Country: None (occurrence: None)
  Receive Date: 20071211
  Receipt Date: 20071125
  Transmission Date: 20080405
  Serious: Yes (Other)
  Sender: FDA-Public Use
  Company Number: ACO_00408_2007

PATIENT
  Sex: Male

DRUGS (2)
  1. TERNELIN (TERNELIN - TIZANIDINE HYDROCHLORIDE) [Suspect]
     Indication: MUSCLE TIGHTNESS
     Dosage: 2 MG QD ORAL
     Route: 048
     Dates: start: 20071109
  2. UNSPECIFIED MULTIPLE DRUG THERAPY [Concomitant]

REACTIONS (1)
  - URINARY RETENTION [None]
